FAERS Safety Report 18451113 (Version 1)
Quarter: 2020Q4

REPORT INFORMATION
  Report Type: Spontaneous
  Country: US (occurrence: US)
  Receive Date: 20201102
  Receipt Date: 20201102
  Transmission Date: 20210114
  Serious: No
  Sender: FDA-Public Use
  Company Number: US-CIPLA LTD.-2020US05208

PATIENT

DRUGS (3)
  1. DUONEB [Concomitant]
     Active Substance: ALBUTEROL SULFATE\IPRATROPIUM BROMIDE
     Indication: PRODUCT USED FOR UNKNOWN INDICATION
     Dosage: UNK (NEBULIZER)
  2. ALBUTEROL [SALBUTAMOL] [Concomitant]
     Active Substance: ALBUTEROL
     Indication: PRODUCT USED FOR UNKNOWN INDICATION
     Dosage: UNK, NEBULIZER
  3. SALBUTAMOL [Suspect]
     Active Substance: ALBUTEROL
     Indication: PRODUCT USED FOR UNKNOWN INDICATION
     Dosage: 2 PUFFS Q4HOURS, 2 INHALERS

REACTIONS (6)
  - Fear [Unknown]
  - Lung disorder [Unknown]
  - Product physical consistency issue [Unknown]
  - Product substitution issue [Unknown]
  - Oral discomfort [Unknown]
  - Vomiting [Unknown]
